FAERS Safety Report 8902220 (Version 1)
Quarter: 2012Q4

REPORT INFORMATION
  Report Type: 
  Country: GB (occurrence: GB)
  Receive Date: 20121112
  Receipt Date: 20121112
  Transmission Date: 20130627
  Serious: Yes (Hospitalization)
  Sender: FDA-Public Use
  Company Number: GB-JNJFOC-20121103959

PATIENT
  Age: 78 Year
  Sex: Male
  Weight: 59 kg

DRUGS (10)
  1. XARELTO [Suspect]
     Indication: THROMBOSIS PROPHYLAXIS
     Route: 048
     Dates: start: 20120125, end: 20120127
  2. XARELTO [Suspect]
     Indication: KNEE ARTHROPLASTY
     Route: 048
     Dates: start: 20120125, end: 20120127
  3. XARELTO [Suspect]
     Indication: POSTOPERATIVE CARE
     Route: 048
     Dates: start: 20120125, end: 20120127
  4. MONTELUKAST [Concomitant]
     Route: 065
  5. OMEPRAZOLE [Concomitant]
     Route: 065
  6. BRICANYL [Concomitant]
     Route: 065
  7. QUININE SULPHATE [Concomitant]
     Route: 065
  8. TAMSULOSIN [Concomitant]
     Route: 065
  9. LEVOTHYROXINE [Concomitant]
     Route: 065
  10. PULMICORT [Concomitant]
     Route: 065

REACTIONS (2)
  - Procedural nausea [Recovered/Resolved]
  - Haematemesis [Recovered/Resolved]
